FAERS Safety Report 5503942-9 (Version None)
Quarter: 2007Q4

REPORT INFORMATION
  Report Type: 
  Country: None (occurrence: None)
  Receive Date: 20071030
  Receipt Date: 20071030
  Transmission Date: 20080405
  Serious: Yes (Hospitalization)
  Sender: FDA-Public Use
  Company Number: None

PATIENT
  Sex: Female
  Weight: 69.9 kg

DRUGS (6)
  1. CHLORAMPHENICOL [Suspect]
     Indication: BACTERAEMIA
     Dosage: 1GM Q6H IV DRIP
     Route: 041
     Dates: start: 20071025, end: 20071029
  2. CHLORAMPHENICOL [Suspect]
     Indication: ENDOCARDITIS
     Dosage: 1GM Q6H IV DRIP
     Route: 041
     Dates: start: 20071025, end: 20071029
  3. CHLORAMPHENICOL [Suspect]
     Indication: STENOTROPHOMONAS INFECTION
     Dosage: 1GM Q6H IV DRIP
     Route: 041
     Dates: start: 20071025, end: 20071029
  4. LEVOFLOXACIN [Concomitant]
  5. BACTRIM [Concomitant]
  6. TIMENTIN [Concomitant]

REACTIONS (1)
  - THROMBOCYTOPENIA [None]
